FAERS Safety Report 5152470-1 (Version None)
Quarter: 2006Q4

REPORT INFORMATION
  Report Type: 
  Country: None (occurrence: None)
  Receive Date: 20061116
  Receipt Date: 20061101
  Transmission Date: 20070319
  Serious: Yes (Hospitalization)
  Sender: FDA-Public Use
  Company Number: FR-ELI_LILLY_AND_COMPANY-FR200611002944

PATIENT
  Age: 78 Year
  Sex: Male

DRUGS (1)
  1. XIGRIS [Suspect]

REACTIONS (2)
  - AUTOANTIBODY POSITIVE [None]
  - FACTOR V DEFICIENCY [None]
